FAERS Safety Report 10216902 (Version 1)
Quarter: 2014Q2

REPORT INFORMATION
  Report Type: Report from Study
  Country: US (occurrence: US)
  Receive Date: 20140604
  Receipt Date: 20140604
  Transmission Date: 20141212
  Serious: Yes (Death)
  Sender: FDA-Public Use
  Company Number: US-SA-2014SA071684

PATIENT
  Age: 64 Year
  Sex: Female

DRUGS (1)
  1. RENVELA [Suspect]
     Indication: HYPERPHOSPHATAEMIA
     Dosage: RENVELA 800 MG, 3 WITH MEALS AND 1 WITH SNACKS
     Route: 048
     Dates: start: 201306

REACTIONS (1)
  - Death [Fatal]
